FAERS Safety Report 8817950 (Version 1)
Quarter: 2012Q4

REPORT INFORMATION
  Report Type: 
  Country: FR (occurrence: US)
  Receive Date: 20121001
  Receipt Date: 20121001
  Transmission Date: 20130627
  Serious: Yes (Other)
  Sender: FDA-Public Use
  Company Number: US-ASTRAZENECA-2012SE70908

PATIENT
  Age: 54 Year
  Sex: Female
  Weight: 81.6 kg

DRUGS (12)
  1. ASPIRIN [Suspect]
     Indication: THROMBOSIS
     Dosage: daily
  2. SYMBICORT [Suspect]
     Indication: PULMONARY OEDEMA
     Dosage: 160/4.5 ug, two times a day
     Route: 055
  3. LYRICA [Suspect]
     Indication: PARAESTHESIA
     Dosage: 3XDAILY (1 capsule in the mor, 2 capsules in afternoon and 2 capsules at night)
     Route: 048
  4. LYRICA [Suspect]
     Indication: FIBROMYALGIA
     Dosage: 3XDAILY (1 capsule in the mor, 2 capsules in afternoon and 2 capsules at night)
     Route: 048
  5. LASIX [Suspect]
     Indication: FLUID RETENTION
  6. NOVOLOG R [Suspect]
     Indication: DIABETES MELLITUS
     Dosage: as needed
  7. PROAIR HFA [Suspect]
     Indication: PULMONARY OEDEMA
     Dosage: TWICE DAILY
  8. CADUET [Suspect]
     Indication: BLOOD PRESSURE ABNORMAL
     Dosage: 5/40mg, daily
  9. CADUET [Suspect]
     Indication: CARDIAC DISORDER
     Dosage: 5/40mg, daily
  10. ZEMPLAR [Suspect]
  11. POTASSIUM [Suspect]
     Indication: MEDICAL DIET
  12. PREDNISONE [Suspect]
     Indication: PULMONARY OEDEMA

REACTIONS (15)
  - Pulmonary oedema [Unknown]
  - Pulmonary fibrosis [Unknown]
  - Muscle spasms [Unknown]
  - Feeling hot [Unknown]
  - Gait disturbance [Unknown]
  - Pruritus [Unknown]
  - Oedema peripheral [Unknown]
  - Sensation of heaviness [Unknown]
  - Paraesthesia [Unknown]
  - Abasia [Unknown]
  - Pain in extremity [Unknown]
  - Blood pressure abnormal [Unknown]
  - Cardiac disorder [Unknown]
  - Drug ineffective [Unknown]
  - Intentional drug misuse [Unknown]
